FAERS Safety Report 16833852 (Version 6)
Quarter: 2020Q1

REPORT INFORMATION
  Report Type: Spontaneous
  Country: US (occurrence: US)
  Receive Date: 20190920
  Receipt Date: 20200103
  Transmission Date: 20200409
  Serious: No
  Sender: FDA-Public Use
  Company Number: US-PFIZER INC-2019314035

PATIENT
  Age: 53 Year
  Sex: Female
  Weight: 77 kg

DRUGS (20)
  1. CLONAZEPAM. [Suspect]
     Active Substance: CLONAZEPAM
     Indication: ANXIETY
     Dosage: 0.5 MG, 2X/DAY
     Dates: start: 201903
  2. CALM [Concomitant]
     Active Substance: TRIFLUOPERAZINE HYDROCHLORIDE
     Indication: SUPPLEMENTATION THERAPY
     Dosage: UNK UNK, DAILY(2 TEAP. IN WATER EACH DAY)
  3. IGNATIA AMARA [Concomitant]
     Active Substance: HERBALS\HOMEOPATHICS\STRYCHNOS IGNATII SEED
     Indication: SUPPLEMENTATION THERAPY
     Dosage: 3 DF, 3X/DAY (3 TAB(S) UNDER THE TONGUE )
     Route: 060
  4. ASTRAGALUS ROOT [Concomitant]
     Active Substance: HERBALS
     Indication: SUPPLEMENTATION THERAPY
     Dosage: 600 MG, 2X/DAY( 2 CAPSULES ORALLY TWICE A DAY)
     Route: 048
  5. IBRANCE [Suspect]
     Active Substance: PALBOCICLIB
     Indication: BREAST CANCER FEMALE
     Dosage: 125 MG, CYCLIC (125 MG ONCE A DAY)
     Dates: start: 201902
  6. XGEVA [Suspect]
     Active Substance: DENOSUMAB
     Indication: BREAST CANCER FEMALE
     Dosage: UNK
     Dates: start: 201908
  7. RISPERIDONE. [Suspect]
     Active Substance: RISPERIDONE
     Dosage: 0.5 MG, AS NEEDED (1 TAB ORALLY 2X DAILY AS NEEDED)
     Route: 048
     Dates: start: 201903
  8. COQ10 [Concomitant]
     Active Substance: UBIDECARENONE
     Indication: SUPPLEMENTATION THERAPY
     Dosage: 3 DF, 1X/DAY (THREE CAPSULES ONCE A DAY )
  9. LETROZOLE. [Concomitant]
     Active Substance: LETROZOLE
     Indication: HORMONE THERAPY
     Dosage: 2.5 MG, 1X/DAY
     Route: 048
     Dates: start: 201902
  10. PROBIOTICS [Concomitant]
     Active Substance: PROBIOTICS NOS
     Dosage: UNK UNK, 2X/DAY(1 TABLET ORALLY TWICE A DAY)
  11. HAMAMELIS VIRGINIANA [Concomitant]
     Active Substance: HAMAMELIS VIRGINIANA ROOT BARK/STEM BARK
     Indication: SUPPLEMENTATION THERAPY
     Dosage: 5 DF, 3X/DAY (3 TAB(S) UNDER THE TONGUE )
     Route: 060
  12. VITAMIN C [Concomitant]
     Active Substance: ASCORBIC ACID
     Indication: SUPPLEMENTATION THERAPY
     Dosage: UNK UNK, 2X/DAY(, 1 TABLET ORALLY TWICE A DAY)
     Route: 048
  13. AMLODIPINE BESILATE [Suspect]
     Active Substance: AMLODIPINE BESYLATE
     Indication: BLOOD PRESSURE ABNORMAL
     Dosage: 2.5 MG, 1X/DAY
     Dates: start: 201909
  14. MELATONIN [Concomitant]
     Active Substance: MELATONIN
     Dosage: 20 MG, 1X/DAY (1 CAP(S) ORALLY ONCE A DAY (AT BEDTIME) )
     Route: 048
  15. CLONAZEPAM. [Suspect]
     Active Substance: CLONAZEPAM
     Dosage: 0.05 MG, UNK
     Dates: start: 201903
  16. GABAPENTIN. [Concomitant]
     Active Substance: GABAPENTIN
     Indication: PAIN
     Dosage: 100 MG, 3X/DAY(1 CAP(S) ORALLY 3 TIMES A DAY X 30 DAYS)
     Route: 048
  17. INOSITOL [Concomitant]
     Active Substance: INOSITOL
     Dosage: UNK UNK, AS NEEDED (: 1-2 SCOOPS ORALLY IN THE EVENING BEFORE BED TIME)
  18. VITAMIN D3 [Concomitant]
     Active Substance: CHOLECALCIFEROL
     Indication: SUPPLEMENTATION THERAPY
     Dosage: UNK UNK, 1X/DAY(1-2 CAPSULES ORALLY ONCE A DAY)
     Route: 048
  19. RISPERIDONE. [Suspect]
     Active Substance: RISPERIDONE
     Indication: ANXIETY
     Dosage: 0.5 MG, 2X/DAY
     Dates: start: 201903
  20. COLACE [Concomitant]
     Active Substance: DOCUSATE SODIUM
     Indication: SUPPLEMENTATION THERAPY
     Dosage: 100 MG, 2X/DAY( 2 CAPSULES ORALLY TWICE A DAY)

REACTIONS (5)
  - Pain [Recovered/Resolved]
  - White blood cell count decreased [Recovered/Resolved]
  - Alopecia [Recovered/Resolved]
  - Fatigue [Recovered/Resolved]
  - Impaired healing [Recovered/Resolved]

NARRATIVE: CASE EVENT DATE: 2019
